FAERS Safety Report 23261070 (Version 2)
Quarter: 2025Q2

REPORT INFORMATION
  Report Type: Spontaneous
  Country: CZ (occurrence: CZ)
  Receive Date: 20231205
  Receipt Date: 20250521
  Transmission Date: 20250716
  Serious: Yes (Hospitalization, Other)
  Sender: AUROBINDO
  Company Number: CZ-Desitin-2023-02723

PATIENT
  Age: 12 Year
  Sex: Female

DRUGS (3)
  1. LAMOTRIGINE [Suspect]
     Active Substance: LAMOTRIGINE
     Indication: Seizure
     Route: 065
  2. VALPROATE SODIUM [Suspect]
     Active Substance: VALPROATE SODIUM
     Indication: Seizure
     Route: 065
  3. LACOSAMIDE [Concomitant]
     Active Substance: LACOSAMIDE
     Indication: Seizure
     Route: 065

REACTIONS (7)
  - Drug reaction with eosinophilia and systemic symptoms [Unknown]
  - Epilepsy [Unknown]
  - Therapeutic product effect incomplete [Recovering/Resolving]
  - Rash morbilliform [Unknown]
  - Illness [Unknown]
  - Liver disorder [Unknown]
  - Pyrexia [Unknown]
